FAERS Safety Report 16590882 (Version 3)
Quarter: 2019Q3

REPORT INFORMATION
  Report Type: Spontaneous
  Country: JP (occurrence: JP)
  Receive Date: 20190718
  Receipt Date: 20190918
  Transmission Date: 20191004
  Serious: Yes (Hospitalization, Other)
  Sender: FDA-Public Use
  Company Number: JP-SA-2019SA192521

PATIENT
  Age: 67 Year
  Sex: Female

DRUGS (8)
  1. ELPLAT [Suspect]
     Active Substance: OXALIPLATIN
     Indication: COLON CANCER
     Dosage: 210 MG, UNK ONCE IN 3WEEKS
     Route: 041
     Dates: start: 20171205, end: 20180413
  2. ELPLAT [Suspect]
     Active Substance: OXALIPLATIN
     Dosage: 170 MG, QD
     Route: 041
     Dates: start: 20180530, end: 20180801
  3. CAPECITABINE. [Concomitant]
     Active Substance: CAPECITABINE
     Dosage: 1500 MG ONCE IN 12HOURS
     Route: 048
     Dates: start: 20171205
  4. EBRANTIL [URAPIDIL] [Concomitant]
     Active Substance: URAPIDIL
     Dosage: UNK UNK, UNK
     Dates: start: 20171205, end: 20180910
  5. BEVACIZUMAB. [Concomitant]
     Active Substance: BEVACIZUMAB
     Dosage: UNK
     Dates: start: 20171205, end: 20180801
  6. ALOXI [Concomitant]
     Active Substance: PALONOSETRON HYDROCHLORIDE
     Dosage: UNK UNK, UNK
     Dates: start: 20171205, end: 20190801
  7. UBRETID [Concomitant]
     Active Substance: DISTIGMINE BROMIDE
     Dosage: UNK UNK, UNK
     Route: 065
     Dates: start: 20171205, end: 20180910
  8. DECADRON [DEXAMETHASONE SODIUM PHOSPHATE] [Concomitant]
     Dosage: UNK
     Route: 065
     Dates: start: 20171205, end: 20180801

REACTIONS (6)
  - Thrombocytopenia [Recovered/Resolved]
  - Portal hypertension [Unknown]
  - Arteriosclerosis [Recovered/Resolved]
  - Venoocclusive liver disease [Unknown]
  - Splenomegaly [Recovering/Resolving]
  - Varices oesophageal [Recovering/Resolving]

NARRATIVE: CASE EVENT DATE: 20180509
